FAERS Safety Report 18975163 (Version 3)
Quarter: 2021Q1

REPORT INFORMATION
  Report Type: Report from Study
  Country: US (occurrence: US)
  Receive Date: 20210305
  Receipt Date: 20210316
  Transmission Date: 20210420
  Serious: Yes (Hospitalization)
  Sender: FDA-Public Use
  Company Number: US-JNJFOC-20210301236

PATIENT
  Age: 15 Year
  Sex: Male
  Weight: 61.29 kg

DRUGS (6)
  1. ENTYVIO [Concomitant]
     Active Substance: VEDOLIZUMAB
  2. INFLIXIMAB, RECOMBINANT [Suspect]
     Active Substance: INFLIXIMAB
     Indication: INFLAMMATORY BOWEL DISEASE
     Route: 042
     Dates: start: 20110607, end: 20120106
  3. IBUPROFEN. [Concomitant]
     Active Substance: IBUPROFEN
  4. HUMIRA [Concomitant]
     Active Substance: ADALIMUMAB
  5. OXYCODONE [Concomitant]
     Active Substance: OXYCODONE
  6. METHOTREXATE. [Concomitant]
     Active Substance: METHOTREXATE

REACTIONS (2)
  - Ileus [Recovered/Resolved]
  - Crohn^s disease [Recovered/Resolved]

NARRATIVE: CASE EVENT DATE: 20131107
